FAERS Safety Report 10400600 (Version 1)
Quarter: 2014Q3

REPORT INFORMATION
  Report Type: Spontaneous
  Country: US (occurrence: US)
  Receive Date: 20140821
  Receipt Date: 20140821
  Transmission Date: 20150326
  Serious: No
  Sender: FDA-Public Use
  Company Number: US-ASTRAZENECA-2014SE03683

PATIENT
  Sex: Male

DRUGS (2)
  1. ADVAIR HFA [Suspect]
     Active Substance: FLUTICASONE PROPIONATE\SALMETEROL XINAFOATE
     Route: 065
  2. SYMBICORT [Suspect]
     Active Substance: BUDESONIDE\FORMOTEROL FUMARATE DIHYDRATE
     Indication: ASTHMA
     Dosage: 80/4.5  2 PUFFS TWO TIMES A DAY
     Route: 055
     Dates: start: 201401

REACTIONS (6)
  - Chest discomfort [Unknown]
  - Discomfort [Unknown]
  - Headache [Unknown]
  - Drug effect incomplete [Unknown]
  - Throat irritation [Unknown]
  - Back pain [Unknown]
